FAERS Safety Report 7095186-7 (Version None)
Quarter: 2010Q4

REPORT INFORMATION
  Report Type: 
  Country: None (occurrence: None)
  Receive Date: 20101103
  Receipt Date: 20101025
  Transmission Date: 20110411
  Serious: Yes (Other)
  Sender: FDA-Public Use
  Company Number: 1000012211

PATIENT
  Age: 63 Year
  Sex: Female
  Weight: 76.2 kg

DRUGS (10)
  1. LEXAPRO [Suspect]
     Indication: GENERALISED ANXIETY DISORDER
     Dosage: 520 MG (20 MG, 1 IN 1 D) ORAL
     Route: 048
     Dates: start: 20070101, end: 20100401
  2. LEXAPRO [Suspect]
     Indication: MAJOR DEPRESSION
     Dosage: 520 MG (20 MG, 1 IN 1 D) ORAL
     Route: 048
     Dates: start: 20070101, end: 20100401
  3. LEXAPRO [Suspect]
     Indication: GENERALISED ANXIETY DISORDER
     Dosage: 10 MG (10 MG, 1 IN 1 D), ORAL
     Route: 048
     Dates: start: 20100401, end: 20100701
  4. LEXAPRO [Suspect]
     Indication: MAJOR DEPRESSION
     Dosage: 10 MG (10 MG, 1 IN 1 D), ORAL
     Route: 048
     Dates: start: 20100401, end: 20100701
  5. LEXAPRO [Suspect]
     Indication: GENERALISED ANXIETY DISORDER
     Dosage: 5 MG (5 MG, 1 IN 1 D), ORAL 2.5 MG (5 MG, QOD), ORAL
     Route: 048
     Dates: start: 20100701, end: 20100915
  6. LEXAPRO [Suspect]
     Indication: MAJOR DEPRESSION
     Dosage: 5 MG (5 MG, 1 IN 1 D), ORAL 2.5 MG (5 MG, QOD), ORAL
     Route: 048
     Dates: start: 20100701, end: 20100915
  7. LEXAPRO [Suspect]
     Indication: GENERALISED ANXIETY DISORDER
     Dosage: 5 MG (5 MG, 1 IN 1 D), ORAL 2.5 MG (5 MG, QOD), ORAL
     Route: 048
     Dates: start: 20100916, end: 20101007
  8. LEXAPRO [Suspect]
     Indication: MAJOR DEPRESSION
     Dosage: 5 MG (5 MG, 1 IN 1 D), ORAL 2.5 MG (5 MG, QOD), ORAL
     Route: 048
     Dates: start: 20100916, end: 20101007
  9. LAMICTAL [Concomitant]
  10. SIMVASTATIN (10 MILLIGRAM) [Concomitant]

REACTIONS (2)
  - RETINAL DETACHMENT [None]
  - WEIGHT INCREASED [None]
